FAERS Safety Report 21022941 (Version 3)
Quarter: 2024Q1

REPORT INFORMATION
  Report Type: Spontaneous
  Country: JP (occurrence: JP)
  Receive Date: 20220629
  Receipt Date: 20240223
  Transmission Date: 20240410
  Serious: Yes (Other)
  Sender: FDA-Public Use
  Company Number: JP-OTSUKA-2022_033555

PATIENT
  Age: 62 Year
  Sex: Male

DRUGS (3)
  1. SAMSCA [Suspect]
     Active Substance: TOLVAPTAN
     Indication: Cardiac failure
     Dosage: 7.5MG/DAY
     Route: 048
     Dates: start: 20220401
  2. FUROSEMIDE [Concomitant]
     Active Substance: FUROSEMIDE
     Indication: Product used for unknown indication
     Dosage: 80/DAY
     Route: 048
     Dates: start: 202204
  3. FUROSEMIDE [Concomitant]
     Active Substance: FUROSEMIDE
     Dosage: 40/DAY
     Route: 048
     Dates: start: 202206

REACTIONS (2)
  - Peritoneal dialysis [Unknown]
  - Glomerular filtration rate abnormal [Unknown]

NARRATIVE: CASE EVENT DATE: 20220601
